FAERS Safety Report 23491968 (Version 1)
Quarter: 2024Q1

REPORT INFORMATION
  Report Type: Spontaneous
  Country: GB (occurrence: GB)
  Receive Date: 20240207
  Receipt Date: 20240207
  Transmission Date: 20240409
  Serious: Yes (Other)
  Sender: FDA-Public Use
  Company Number: GB-MHRA-TPP3088972C18635857YC1705416568701

PATIENT
  Age: 2 Month
  Sex: Male
  Weight: 90 kg

DRUGS (9)
  1. GABAPENTIN [Suspect]
     Active Substance: GABAPENTIN
     Indication: Adverse drug reaction
     Dosage: 300 MILLIGRAM, 3 TIMES A DAY
     Route: 048
     Dates: start: 20240108
  2. GABAPENTIN [Suspect]
     Active Substance: GABAPENTIN
     Indication: Dizziness
     Dosage: UNK
     Route: 048
     Dates: start: 20240116, end: 20240116
  3. GABAPENTIN [Suspect]
     Active Substance: GABAPENTIN
     Dosage: UNK
     Route: 065
     Dates: start: 20240116
  4. BENZYDAMINE HYDROCHLORIDE [Concomitant]
     Active Substance: BENZYDAMINE HYDROCHLORIDE
     Indication: Ill-defined disorder
     Dosage: USE EVERY 3 HRS
     Route: 065
     Dates: start: 20240111
  5. CLOPIDOGREL [Concomitant]
     Active Substance: CLOPIDOGREL BISULFATE
     Indication: Ill-defined disorder
     Dosage: 1 DOSAGE FORM, ONCE A DAY
     Route: 065
     Dates: start: 20231016
  6. DOXAZOSIN [Concomitant]
     Active Substance: DOXAZOSIN MESYLATE
     Indication: Ill-defined disorder
     Dosage: 1 DOSAGE FORM, DAILY
     Route: 065
     Dates: start: 20231016
  7. GABAPENTIN [Concomitant]
     Active Substance: GABAPENTIN
     Indication: Ill-defined disorder
     Dosage: 1 DOSAGE FORM, 3 TIMES A DAY
     Route: 065
     Dates: start: 20240108
  8. PREGABALIN [Concomitant]
     Active Substance: PREGABALIN
     Indication: Ill-defined disorder
     Dosage: 1 DOSAGE FORM, TWO TIMES A DAY
     Route: 065
     Dates: start: 20240116
  9. SIMVASTATIN [Concomitant]
     Active Substance: SIMVASTATIN
     Indication: Ill-defined disorder
     Dosage: 1 DOSAGE FORM, ONCE A DAY (AT NIGHT)
     Route: 065
     Dates: start: 20231016

REACTIONS (3)
  - Dizziness [Recovered/Resolved]
  - Confusional state [Unknown]
  - Pyrexia [Unknown]

NARRATIVE: CASE EVENT DATE: 20240116
